FAERS Safety Report 8765201 (Version 1)
Quarter: 2012Q4

REPORT INFORMATION
  Report Type: 
  Country: US (occurrence: US)
  Receive Date: 20120902
  Receipt Date: 20120902
  Transmission Date: 20130627
  Serious: No
  Sender: FDA-Public Use
  Company Number: US-PFIZER INC-2012215310

PATIENT
  Age: 44 Year
  Sex: Female
  Weight: 63.49 kg

DRUGS (6)
  1. PRISTIQ [Suspect]
     Indication: OBSESSIVE-COMPULSIVE DISORDER
     Dosage: 50 mg, 1x/day
     Route: 048
     Dates: start: 20120828
  2. SERTRALINE [Suspect]
     Indication: OBSESSIVE-COMPULSIVE DISORDER
     Dosage: 100 mg, 1x/day
     Route: 048
     Dates: end: 20120826
  3. AMBIEN [Concomitant]
     Indication: ANXIETY
     Dosage: UNK
  4. AMBIEN [Concomitant]
     Indication: SLEEP DISORDER
  5. LORAZEPAM [Concomitant]
     Indication: ANXIETY
     Dosage: UNK
  6. LORAZEPAM [Concomitant]
     Indication: SLEEP DISORDER

REACTIONS (1)
  - Insomnia [Not Recovered/Not Resolved]
